FAERS Safety Report 9761370 (Version 1)
Quarter: 2013Q4

REPORT INFORMATION
  Report Type: Spontaneous
  Country: BH (occurrence: BH)
  Receive Date: 20131216
  Receipt Date: 20131216
  Transmission Date: 20140711
  Serious: Yes (Other)
  Sender: FDA-Public Use
  Company Number: BH-BAXTER-2013BAX050014

PATIENT
  Sex: Female

DRUGS (4)
  1. KIOVIG 100MG/ML - 10G/100ML [Suspect]
     Indication: MYASTHENIA GRAVIS
     Route: 042
  2. KIOVIG 100MG/ML - 10G/100ML [Suspect]
     Indication: OFF LABEL USE
  3. MYCOPHENOLATE MOFETIL [Suspect]
     Indication: MYASTHENIA GRAVIS
     Route: 065
  4. MYCOPHENOLATE MOFETIL [Suspect]
     Indication: OFF LABEL USE

REACTIONS (1)
  - Drug ineffective [Not Recovered/Not Resolved]
